FAERS Safety Report 7297910-7 (Version None)
Quarter: 2011Q1

REPORT INFORMATION
  Report Type: 
  Country: None (occurrence: None)
  Receive Date: 20110217
  Receipt Date: 20101220
  Transmission Date: 20110831
  Serious: No
  Sender: FDA-Public Use
  Company Number: US-KINGPHARMUSA00001-K201001519

PATIENT
  Sex: Female

DRUGS (1)
  1. FLECTOR [Suspect]
     Indication: ARTHRALGIA
     Dosage: 1 PATCH, Q12H
     Route: 061
     Dates: start: 20101203, end: 20101204

REACTIONS (2)
  - APPLICATION SITE RASH [None]
  - APPLICATION SITE PAIN [None]
